FAERS Safety Report 24306485 (Version 1)
Quarter: 2024Q3

REPORT INFORMATION
  Report Type: Spontaneous
  Country: IN (occurrence: IN)
  Receive Date: 20240911
  Receipt Date: 20240911
  Transmission Date: 20241017
  Serious: Yes (Other)
  Sender: STRIDES
  Company Number: IN-STRIDES ARCOLAB LIMITED-2024SP011408

PATIENT
  Age: 5 Year
  Sex: Male

DRUGS (4)
  1. PREDNISOLONE [Suspect]
     Active Substance: PREDNISOLONE
     Indication: Nephrotic syndrome
     Dosage: 2 MILLIGRAM/KILOGRAM BODY WEIGHT
     Route: 065
  2. PREDNISOLONE [Suspect]
     Active Substance: PREDNISOLONE
     Dosage: 1.5 MILLIGRAM/KILOGRAM, QD (DOSE TAPERED AFTER 2 MONTHS AND ABRUPTLY STOPPED AFTER 2 MONTHS)
     Route: 065
  3. PREDNISOLONE [Suspect]
     Active Substance: PREDNISOLONE
     Dosage: 10 MILLIGRAM, QD
     Route: 065
  4. PREDNISOLONE [Suspect]
     Active Substance: PREDNISOLONE
     Dosage: 5 MILLIGRAM, QD, (DOSE TAPERED AND STOPPED AFTER 2 WEEKS)
     Route: 065

REACTIONS (2)
  - Panniculitis [Recovered/Resolved]
  - Steroid withdrawal syndrome [Recovered/Resolved]
